FAERS Safety Report 12187102 (Version 1)
Quarter: 2016Q1

REPORT INFORMATION
  Report Type: Spontaneous
  Country: US (occurrence: None)
  Receive Date: 20160316
  Receipt Date: 20160316
  Transmission Date: 20160526
  Serious: Yes (Hospitalization)
  Sender: FDA-Public Use
  Company Number: None

PATIENT
  Age: 59 Year
  Sex: Male
  Weight: 69.26 kg

DRUGS (19)
  1. BUPROPION. [Concomitant]
     Active Substance: BUPROPION
  2. NEXIUM [Concomitant]
     Active Substance: ESOMEPRAZOLE MAGNESIUM
  3. ZOFRAN [Concomitant]
     Active Substance: ONDANSETRON HYDROCHLORIDE
  4. TRAZODONE [Concomitant]
     Active Substance: TRAZODONE HYDROCHLORIDE
  5. SOFOSBUVIR 400 MG [Suspect]
     Active Substance: SOFOSBUVIR
     Indication: HEPATITIS C
     Route: 048
     Dates: start: 20140904, end: 20141212
  6. LASIX [Concomitant]
     Active Substance: FUROSEMIDE
  7. MULTI VITAMIN [Concomitant]
     Active Substance: VITAMINS
  8. THIAMINE. [Concomitant]
     Active Substance: THIAMINE
  9. ZINC [Concomitant]
     Active Substance: ZINC\ZINC CHLORIDE
  10. XANAX [Concomitant]
     Active Substance: ALPRAZOLAM
  11. SILDENAFIL. [Concomitant]
     Active Substance: SILDENAFIL
  12. RIFAXIMIN [Concomitant]
     Active Substance: RIFAXIMIN
  13. REQUIP [Concomitant]
     Active Substance: ROPINIROLE HYDROCHLORIDE
  14. AMILORIDE [Concomitant]
     Active Substance: AMILORIDE
  15. LACTULOSE. [Concomitant]
     Active Substance: LACTULOSE
  16. OXYCODONE [Concomitant]
     Active Substance: OXYCODONE
  17. RIBAVIRIN 1000 MG [Suspect]
     Active Substance: RIBAVIRIN
     Indication: HEPATITIS C
     Route: 048
     Dates: start: 20140904, end: 20141212
  18. TRAMADOL. [Concomitant]
     Active Substance: TRAMADOL
  19. TREPROSTIN [Concomitant]

REACTIONS (6)
  - Hypovolaemia [None]
  - Hypertension [None]
  - Hypotension [None]
  - Nausea [None]
  - Dysphoria [None]
  - Peritoneal haemorrhage [None]

NARRATIVE: CASE EVENT DATE: 20141114
